FAERS Safety Report 23632729 (Version 1)
Quarter: 2024Q1

REPORT INFORMATION
  Report Type: Report from Study
  Country: US (occurrence: US)
  Receive Date: 20240314
  Receipt Date: 20240314
  Transmission Date: 20240409
  Serious: Yes (Other)
  Sender: FDA-Public Use
  Company Number: US-ARGENX-2023-ARGX-US003454

PATIENT

DRUGS (1)
  1. VYVGART [Suspect]
     Active Substance: EFGARTIGIMOD ALFA-FCAB
     Indication: Product used for unknown indication
     Dosage: UNK
     Route: 042

REACTIONS (10)
  - Urinary retention [Unknown]
  - Pain [Unknown]
  - Arthralgia [Unknown]
  - Weight decreased [Unknown]
  - Jaw disorder [Unknown]
  - Insomnia [Unknown]
  - Fall [Unknown]
  - Therapeutic product effect incomplete [Unknown]
  - Joint stiffness [Unknown]
  - Hypoaesthesia [Unknown]
